FAERS Safety Report 5836509-3 (Version None)
Quarter: 2008Q3

REPORT INFORMATION
  Report Type: 
  Country: None (occurrence: None)
  Receive Date: 20080806
  Receipt Date: 20080806
  Transmission Date: 20090109
  Serious: Yes (Life-Threatening, Hospitalization)
  Sender: FDA-Public Use
  Company Number: None

PATIENT
  Age: 79 Year
  Sex: Male
  Weight: 63.2 kg

DRUGS (2)
  1. BUPROPION HCL [Suspect]
     Indication: SMOKING CESSATION THERAPY
     Dosage: 150 MG BID PO
     Route: 048
     Dates: start: 20080523, end: 20080606
  2. SERTRALINE [Suspect]
     Indication: DEPRESSION
     Dosage: 50 MG AT BEDTIME PO
     Route: 048
     Dates: start: 20030731, end: 20080606

REACTIONS (5)
  - CARDIAC FAILURE CONGESTIVE [None]
  - CONDITION AGGRAVATED [None]
  - DYSPNOEA [None]
  - HYPERTENSIVE CRISIS [None]
  - RENAL FAILURE [None]
